FAERS Safety Report 4977702-1 (Version None)
Quarter: 2006Q2

REPORT INFORMATION
  Report Type: 
  Country: None (occurrence: None)
  Receive Date: 20060420
  Receipt Date: 20060209
  Transmission Date: 20061013
  Serious: No
  Sender: FDA-Public Use
  Company Number: US-GLAXOSMITHKLINE-A0593083A

PATIENT
  Sex: Female

DRUGS (1)
  1. ESKALITH CR [Suspect]
     Dosage: 450MG UNKNOWN
     Route: 048

REACTIONS (1)
  - DRUG ADMINISTRATION ERROR [None]
